FAERS Safety Report 5276522-0 (Version None)
Quarter: 2007Q1

REPORT INFORMATION
  Report Type: 
  Country: None (occurrence: None)
  Receive Date: 20061213
  Receipt Date: 20031204
  Transmission Date: 20070707
  Serious: No
  Sender: FDA-Public Use
  Company Number: 2003UW12993

PATIENT
  Age: 14 Year
  Weight: 62.5964 kg

DRUGS (7)
  1. SEROQUEL [Suspect]
     Indication: PSYCHOTIC DISORDER
     Dosage: 300 MG BID PO
     Route: 048
     Dates: start: 20030915
  2. SEROQUEL [Suspect]
     Indication: PSYCHOTIC DISORDER
  3. SEROQUEL [Suspect]
     Indication: PSYCHOTIC DISORDER
  4. RISPERDAL [Concomitant]
  5. DEPAKOTE [Concomitant]
  6. ADDERALL 10 [Concomitant]
  7. LUVOX [Concomitant]

REACTIONS (1)
  - TARDIVE DYSKINESIA [None]
